FAERS Safety Report 18213518 (Version 3)
Quarter: 2020Q4

REPORT INFORMATION
  Report Type: Spontaneous
  Country: US (occurrence: US)
  Receive Date: 20200831
  Receipt Date: 20201026
  Transmission Date: 20210113
  Serious: No
  Sender: FDA-Public Use
  Company Number: US-PFIZER INC-2020334126

PATIENT
  Age: 58 Year
  Sex: Female
  Weight: 63.05 kg

DRUGS (1)
  1. PREGABALIN. [Suspect]
     Active Substance: PREGABALIN
     Indication: FIBROMYALGIA
     Dosage: 150 MG, 3X/DAY
     Route: 048
     Dates: start: 202007

REACTIONS (6)
  - Mobility decreased [Unknown]
  - Drug ineffective [Unknown]
  - Pain [Unknown]
  - Dermatitis [Unknown]
  - Skin burning sensation [Unknown]
  - Product dispensing error [Unknown]

NARRATIVE: CASE EVENT DATE: 202007
